FAERS Safety Report 14630396 (Version 2)
Quarter: 2018Q1

REPORT INFORMATION
  Report Type: Spontaneous
  Country: US (occurrence: US)
  Receive Date: 20180313
  Receipt Date: 20180313
  Transmission Date: 20180509
  Serious: Yes (Other)
  Sender: FDA-Public Use
  Company Number: US-JNJFOC-20180304463

PATIENT
  Age: 17 Year
  Sex: Male

DRUGS (1)
  1. BENADRYL ALLERGY [Suspect]
     Active Substance: DIPHENHYDRAMINE HYDROCHLORIDE
     Indication: SINUS CONGESTION
     Route: 048

REACTIONS (2)
  - Seizure [Unknown]
  - Product use in unapproved indication [Unknown]
